FAERS Safety Report 14389886 (Version 1)
Quarter: 2018Q1

REPORT INFORMATION
  Report Type: Report from Study
  Country: GB (occurrence: GB)
  Receive Date: 20180115
  Receipt Date: 20180115
  Transmission Date: 20180509
  Serious: Yes (Hospitalization, Other)
  Sender: FDA-Public Use
  Company Number: GB-BAXTER-2018BAX001170

PATIENT
  Age: 12 Year
  Sex: Female
  Weight: 53 kg

DRUGS (8)
  1. METOCLOPRAMIDE. [Concomitant]
     Active Substance: METOCLOPRAMIDE
     Indication: PRODUCT USED FOR UNKNOWN INDICATION
     Route: 065
  2. IFOSFAMIDE INJECTION 2G [Suspect]
     Active Substance: IFOSFAMIDE
     Indication: OSTEOSARCOMA
     Dosage: 3000 MG/M2, CYCLE
     Route: 040
     Dates: start: 20161121, end: 20170216
  3. LENVATINIB [Suspect]
     Active Substance: LENVATINIB
     Indication: OSTEOSARCOMA
     Dosage: 18 UNK, UNK
     Route: 048
     Dates: start: 20161205, end: 20170113
  4. PHOSPHATE SANDOZ EFFERVESCENT [Concomitant]
     Indication: PRODUCT USED FOR UNKNOWN INDICATION
     Route: 065
  5. LENVATINIB [Suspect]
     Active Substance: LENVATINIB
     Dosage: 18 MG, QD
     Route: 048
     Dates: start: 20161121, end: 20161130
  6. ETOPOSIDE. [Suspect]
     Active Substance: ETOPOSIDE
     Indication: OSTEOSARCOMA
     Dosage: 100 MG/M2, CYCLE
     Route: 040
     Dates: start: 20161121, end: 20170216
  7. ONDANSETRON [Concomitant]
     Active Substance: ONDANSETRON
     Indication: PRODUCT USED FOR UNKNOWN INDICATION
     Route: 065
  8. LENVATINIB [Suspect]
     Active Substance: LENVATINIB
     Dosage: 13 MG, QD
     Route: 048
     Dates: start: 20170124, end: 20170313

REACTIONS (13)
  - Diarrhoea haemorrhagic [Unknown]
  - Febrile neutropenia [Recovered/Resolved]
  - Epistaxis [Unknown]
  - Proctalgia [Unknown]
  - Pain [Not Recovered/Not Resolved]
  - Abdominal pain [Recovering/Resolving]
  - Wound infection [Recovered/Resolved]
  - Arthropathy [Unknown]
  - Back pain [Recovered/Resolved]
  - Infection [Unknown]
  - Bone marrow failure [Unknown]
  - Erythema [Unknown]
  - Constipation [Unknown]

NARRATIVE: CASE EVENT DATE: 20161128
